FAERS Safety Report 7487194-9 (Version None)
Quarter: 2011Q2

REPORT INFORMATION
  Report Type: 
  Country: None (occurrence: None)
  Receive Date: 20110518
  Receipt Date: 20110412
  Transmission Date: 20111010
  Serious: Yes (Other)
  Sender: FDA-Public Use
  Company Number: US-BAYER-201037631NA

PATIENT
  Age: 18 Year
  Sex: Female
  Weight: 73 kg

DRUGS (5)
  1. YASMIN [Suspect]
     Indication: ACNE
  2. IBUPROFEN [Concomitant]
     Dosage: UNK
     Dates: start: 20030101, end: 20070101
  3. YAZ [Suspect]
     Indication: ACNE
  4. DROSPIRENONE AND ETHINYL ESTRADIOL [Suspect]
     Indication: ACNE
  5. NAPROXEN DC [Concomitant]
     Dosage: 500 MG, UNK

REACTIONS (6)
  - GALLBLADDER DISORDER [None]
  - NEPHROPATHY [None]
  - POLYCYSTIC OVARIES [None]
  - NEPHROLITHIASIS [None]
  - CALCULUS URETERIC [None]
  - BILIARY DYSKINESIA [None]
